FAERS Safety Report 24344567 (Version 1)
Quarter: 2024Q3

REPORT INFORMATION
  Report Type: Spontaneous
  Country: JP (occurrence: JP)
  Receive Date: 20240920
  Receipt Date: 20240920
  Transmission Date: 20241016
  Serious: Yes (Hospitalization, Other)
  Sender: EMD SERONO INC
  Company Number: JP-Merck Healthcare KGaA-2024049285

PATIENT
  Age: 88 Year
  Sex: Female
  Weight: 55 kg

DRUGS (7)
  1. METGLUCO [Suspect]
     Active Substance: METFORMIN HYDROCHLORIDE
     Indication: Type 2 diabetes mellitus
     Route: 048
  2. GLIMEPIRIDE [Suspect]
     Active Substance: GLIMEPIRIDE
     Indication: Product used for unknown indication
     Dosage: UNKNOWN
     Route: 048
  3. ATORVASTATIN CALCIUM TRIHYDRATE [Suspect]
     Active Substance: ATORVASTATIN CALCIUM TRIHYDRATE
     Indication: Product used for unknown indication
     Dosage: UNKNOWN
     Route: 048
  4. VALSARTAN [Suspect]
     Active Substance: VALSARTAN
     Indication: Product used for unknown indication
     Route: 048
  5. AMLODIPINE BESYLATE [Suspect]
     Active Substance: AMLODIPINE BESYLATE
     Indication: Product used for unknown indication
     Dosage: QD, UNKNOWN
     Route: 048
  6. AMLODIPINE BESYLATE [Suspect]
     Active Substance: AMLODIPINE BESYLATE
     Dosage: UNKNOWN
     Route: 048
  7. ACETAMINOPHEN\BROMISOVAL\DIHYDROCODEINE PHOSPHATE\DIPHENHYDRAMINE SALI [Concomitant]
     Active Substance: ACETAMINOPHEN\BROMISOVAL\DIHYDROCODEINE PHOSPHATE\DIPHENHYDRAMINE SALICYLATE\DYPHYLLINE\METHYLEPHEDR
     Indication: Product used for unknown indication

REACTIONS (33)
  - Eosinophilic myocarditis [Recovered/Resolved]
  - Eosinophilic granulomatosis with polyangiitis [Unknown]
  - Pulmonary congestion [Unknown]
  - Ventricular tachycardia [Unknown]
  - Pericardial effusion [Unknown]
  - Cardiac failure [Unknown]
  - Gastrointestinal haemorrhage [Unknown]
  - Oedema peripheral [Unknown]
  - Asthma [Unknown]
  - Lymphadenopathy [Unknown]
  - Oedema [Unknown]
  - White blood cell count increased [Unknown]
  - Platelet count decreased [Unknown]
  - Basophil count decreased [Unknown]
  - Lymphocyte count decreased [Unknown]
  - Protein total decreased [Unknown]
  - Blood creatine phosphokinase increased [Unknown]
  - C-reactive protein increased [Unknown]
  - Hyperglycaemia [Unknown]
  - Atrioventricular block [Unknown]
  - Ventricular hypertrophy [Unknown]
  - Lung opacity [Unknown]
  - Electrocardiogram ST segment depression [Unknown]
  - Pleural effusion [Unknown]
  - Haemoglobin decreased [Unknown]
  - Eosinophil percentage increased [Unknown]
  - Blood albumin decreased [Unknown]
  - Glomerular filtration rate decreased [Unknown]
  - Blood lactate dehydrogenase increased [Unknown]
  - Brain natriuretic peptide increased [Unknown]
  - Troponin I increased [Unknown]
  - Aspartate aminotransferase increased [Unknown]
  - Decreased appetite [Unknown]
